FAERS Safety Report 10514791 (Version 2)
Quarter: 2015Q1

REPORT INFORMATION
  Report Type: Spontaneous
  Country: US (occurrence: US)
  Receive Date: 20141013
  Receipt Date: 20150223
  Transmission Date: 20150720
  Serious: No
  Sender: FDA-Public Use
  Company Number: US-PFIZER INC-2014278931

PATIENT
  Age: 47 Year
  Sex: Female
  Weight: 104 kg

DRUGS (24)
  1. IBUPROFEN. [Suspect]
     Active Substance: IBUPROFEN
     Dosage: 800 MG, UNK (2 TABLETS UP TO TWICE A DAY; MANY YEARS)
     Route: 048
  2. OXYCODONE [Concomitant]
     Active Substance: OXYCODONE
     Dosage: 5 MG, 4X/DAY
     Route: 048
  3. HYDROCHLOROTHIAZIDE, LOSARTAN POTASSIUM [Concomitant]
     Dosage: (100 MG LORSARTAN 25MG HYDROCHLOROTHIAZIDE), ONCE DAILY (MORE THAN 10 YEARS)
     Route: 048
  4. PROAIR HFA [Concomitant]
     Active Substance: ALBUTEROL SULFATE
     Dosage: UNK, AS NEEDED BY MOUTH (6 YEARS)
     Route: 055
  5. VITAMIN C [Concomitant]
     Active Substance: ASCORBIC ACID
     Dosage: 100 MG, UNK (CHILDHOOD)
     Route: 048
  6. BIOTIN [Concomitant]
     Active Substance: BIOTIN
     Dosage: 5000 ?G, UNK (7 YEARS)
     Route: 048
  7. PROTONIX [Concomitant]
     Active Substance: PANTOPRAZOLE SODIUM
     Dosage: 40 MG, 1X/DAY (IN MORNING; STARTED 15+)
     Route: 048
  8. FIORICET [Concomitant]
     Active Substance: ACETAMINOPHEN\BUTALBITAL\CAFFEINE
     Indication: MIGRAINE
  9. DENAVIR [Concomitant]
     Active Substance: PENCICLOVIR
     Dosage: 1 % CREAM, AS NEEDED
  10. VALTREX [Concomitant]
     Active Substance: VALACYCLOVIR HYDROCHLORIDE
     Dosage: UNK, AS NEEDED
  11. OSTEO BI-FLEX [Concomitant]
     Active Substance: CHONDROITIN SULFATE A\GLUCOSAMINE
     Dosage: UNK, (6 YEARS)
  12. OSTEOBIOFLEX [Concomitant]
     Dosage: 1 DF, DAILY
     Route: 048
  13. MULTIVITAMINS [Concomitant]
     Active Substance: VITAMINS
     Dosage: UNK, ^ONCE^ (STARTED SINCE CHILDHOOD; PLAIN WOMENS)
     Route: 048
  14. DULOXETINE [Concomitant]
     Active Substance: DULOXETINE
     Dosage: 60 MG, 1X/DAY (2 YEARS)
     Route: 048
  15. IMITREX [Concomitant]
     Active Substance: SUMATRIPTAN\SUMATRIPTAN SUCCINATE
     Indication: MIGRAINE
     Dosage: 100 MG, AS NEEDED (MORE THAN 10)
     Route: 048
  16. LACTAID [Concomitant]
     Active Substance: LACTASE
     Dosage: UNK (W/DAIRY 6 YEARS)
  17. TRAMADOL [Concomitant]
     Active Substance: TRAMADOL
     Indication: BACK PAIN
     Dosage: 50 MG, AS NEEDED
  18. NYSTATIN/TRIAMCINOLONE [Concomitant]
     Indication: RASH
     Dosage: UNK, AS NEEDED
  19. ZYRTEC [Concomitant]
     Active Substance: CETIRIZINE HYDROCHLORIDE
     Dosage: 1 DF, 1X/DAY (10 YEARS)
     Route: 048
  20. GABAPENTIN. [Concomitant]
     Active Substance: GABAPENTIN
     Dosage: 300 MG, 2X/DAY (2 YEARS)
     Route: 048
  21. FIORICET [Concomitant]
     Active Substance: ACETAMINOPHEN\BUTALBITAL\CAFFEINE
     Indication: HEADACHE
     Dosage: UNK, AS NEEDED (6 YEARS)
  22. CELEBREX [Suspect]
     Active Substance: CELECOXIB
     Indication: ARTHRITIS
     Dosage: 200 MG, (AT BED TIME)
     Dates: start: 201202
  23. SINGULAIR [Concomitant]
     Active Substance: MONTELUKAST SODIUM
     Dosage: 10 MG, 1X/DAY (STARTED 15+)
     Route: 048
  24. SYMBICORT [Concomitant]
     Active Substance: BUDESONIDE\FORMOTEROL FUMARATE DIHYDRATE
     Dosage: 2 PUFFS, 2X/DAY
     Dates: start: 201412

REACTIONS (6)
  - Dysgeusia [Not Recovered/Not Resolved]
  - Ulcer [Recovered/Resolved]
  - Breath odour [Not Recovered/Not Resolved]
  - Gastrooesophageal reflux disease [Not Recovered/Not Resolved]
  - Rash [Unknown]
  - Incorrect dose administered [Unknown]

NARRATIVE: CASE EVENT DATE: 201202
